FAERS Safety Report 5944437-8 (Version None)
Quarter: 2008Q4

REPORT INFORMATION
  Report Type: 
  Country: None (occurrence: None)
  Receive Date: 20081107
  Receipt Date: 20081030
  Transmission Date: 20090506
  Serious: Yes (Hospitalization)
  Sender: FDA-Public Use
  Company Number: JP-JNJFOC-20081007198

PATIENT
  Age: 66 Year
  Sex: Female

DRUGS (7)
  1. CRAVIT [Suspect]
     Indication: URINARY TRACT INFECTION
     Route: 048
  2. LASIX [Concomitant]
  3. ALDACTONE [Concomitant]
  4. LANIRAPID [Concomitant]
  5. ZYLORIC [Concomitant]
  6. SELBEX [Concomitant]
  7. THEO-DUR [Concomitant]

REACTIONS (1)
  - HYPONATRAEMIA [None]
